FAERS Safety Report 9919261 (Version 5)
Quarter: 2017Q1

REPORT INFORMATION
  Report Type: Spontaneous
  Country: US (occurrence: US)
  Receive Date: 20140224
  Receipt Date: 20170310
  Transmission Date: 20170429
  Serious: Yes (Other)
  Sender: FDA-Public Use
  Company Number: US-JNJFOC-20130710610

PATIENT
  Sex: Male
  Weight: 107.96 kg

DRUGS (5)
  1. CLOMIPRAMINE [Concomitant]
     Active Substance: CLOMIPRAMINE
     Route: 065
  2. RISPERIDAL [Suspect]
     Active Substance: RISPERIDONE
     Indication: OBSESSIVE-COMPULSIVE DISORDER
     Route: 048
     Dates: start: 2005, end: 2006
  3. NEURONTIN [Concomitant]
     Active Substance: GABAPENTIN
     Route: 065
  4. TRAZODONE [Concomitant]
     Active Substance: TRAZODONE HYDROCHLORIDE
     Route: 065
  5. GABAPENTIN. [Concomitant]
     Active Substance: GABAPENTIN
     Route: 065

REACTIONS (8)
  - Drug ineffective [Unknown]
  - Glucose tolerance impaired [Unknown]
  - Emotional distress [Unknown]
  - Tardive dyskinesia [Not Recovered/Not Resolved]
  - Obesity [Recovering/Resolving]
  - Suicidal ideation [Recovering/Resolving]
  - Cognitive disorder [Recovered/Resolved]
  - Gynaecomastia [Not Recovered/Not Resolved]
